FAERS Safety Report 5607311-2 (Version None)
Quarter: 2008Q1

REPORT INFORMATION
  Report Type: 
  Country: None (occurrence: None)
  Receive Date: 20080130
  Receipt Date: 20080122
  Transmission Date: 20080703
  Serious: Yes (Hospitalization)
  Sender: FDA-Public Use
  Company Number: US-JNJFOC-20080104077

PATIENT
  Age: 22 Month
  Sex: Male

DRUGS (1)
  1. IBUPROFEN [Suspect]
     Indication: PYREXIA
     Dosage: EVERY 6-8 HOURS

REACTIONS (4)
  - BRAIN ABSCESS [None]
  - ENDOCARDITIS STAPHYLOCOCCAL [None]
  - MITRAL VALVE INCOMPETENCE [None]
  - RASH MACULAR [None]
